FAERS Safety Report 9472743 (Version 1)
Quarter: 2013Q3

REPORT INFORMATION
  Report Type: Spontaneous
  Country: US (occurrence: None)
  Receive Date: 20130821
  Receipt Date: 20130821
  Transmission Date: 20140515
  Serious: Yes (Life-Threatening, Hospitalization)
  Sender: FDA-Public Use
  Company Number: None

PATIENT
  Age: 76 Year
  Sex: Male
  Weight: 71.9 kg

DRUGS (2)
  1. ENOXAPARIN [Suspect]
     Indication: CARDIAC VENTRICULAR THROMBOSIS
     Dates: start: 20130318, end: 20130426
  2. WARFARIN [Suspect]
     Indication: CARDIAC VENTRICULAR THROMBOSIS
     Route: 048
     Dates: start: 20130419, end: 20130426

REACTIONS (1)
  - Abdominal wall haematoma [None]
